FAERS Safety Report 4663163-9 (Version None)
Quarter: 2005Q2

REPORT INFORMATION
  Report Type: 
  Country: None (occurrence: None)
  Receive Date: 20050513
  Receipt Date: 20050427
  Transmission Date: 20051028
  Serious: Yes (Other)
  Sender: FDA-Public Use
  Company Number: 2005BL002738

PATIENT
  Age: 58 Year
  Sex: Female

DRUGS (1)
  1. RETISERT (FLUOCINOLONE ACETONIDE INTRAVITRAL IMPLANT 0.59 MG) [Suspect]
     Indication: CHOROIDITIS
     Dosage: LEFT EYE
     Dates: start: 20020807

REACTIONS (2)
  - RETINAL VEIN OCCLUSION [None]
  - VISUAL ACUITY REDUCED [None]
